FAERS Safety Report 15325694 (Version 2)
Quarter: 2018Q3

REPORT INFORMATION
  Report Type: Report from Study
  Country: GB (occurrence: GB)
  Receive Date: 20180828
  Receipt Date: 20180905
  Transmission Date: 20181010
  Serious: Yes (Hospitalization)
  Sender: FDA-Public Use
  Company Number: GB-ROCHE-2173686

PATIENT
  Age: 38 Year
  Sex: Female
  Weight: 105 kg

DRUGS (10)
  1. COBIMETINIB. [Suspect]
     Active Substance: COBIMETINIB
     Indication: COLORECTAL CANCER
     Dosage: DAYS 1 TO 21 IN A 28?DAY CYCLE
     Route: 048
     Dates: start: 20161114
  2. PARACETAMOL [Concomitant]
     Active Substance: ACETAMINOPHEN
     Indication: DIARRHOEA
     Route: 048
     Dates: start: 201705
  3. ELLESTE DUET [Concomitant]
     Indication: MENOPAUSAL SYMPTOMS
     Route: 048
     Dates: start: 201803
  4. SALBUTAMOL [Concomitant]
     Active Substance: ALBUTEROL
     Indication: SEASONAL ALLERGY
     Route: 048
     Dates: start: 20180606
  5. CANDESARTAN. [Concomitant]
     Active Substance: CANDESARTAN
     Route: 048
     Dates: start: 201608
  6. ATEZOLIZUMAB. [Suspect]
     Active Substance: ATEZOLIZUMAB
     Indication: COLORECTAL CANCER
     Dosage: 09/JUL/2018, 16 45, MOST RECENT DOSE OF ATEZOLIZUMAB PRIOR TO SAE ONSET 840 MG
     Route: 042
     Dates: start: 20161114
  7. CETIRIZINE [Concomitant]
     Active Substance: CETIRIZINE HYDROCHLORIDE
     Indication: SEASONAL ALLERGY
     Route: 048
     Dates: start: 201706
  8. PARACETAMOL [Concomitant]
     Active Substance: ACETAMINOPHEN
     Indication: PROCEDURAL PAIN
     Route: 048
     Dates: start: 20171005
  9. PARACETAMOL [Concomitant]
     Active Substance: ACETAMINOPHEN
     Indication: BACK PAIN
     Route: 048
     Dates: start: 20180705
  10. PIRITON [Concomitant]
     Active Substance: CHLORPHENIRAMINE MALEATE
     Indication: SEASONAL ALLERGY
     Route: 048
     Dates: start: 20180530

REACTIONS (1)
  - Metastases to lung [Recovered/Resolved]

NARRATIVE: CASE EVENT DATE: 20180709
